FAERS Safety Report 4579503-5 (Version None)
Quarter: 2005Q1

REPORT INFORMATION
  Report Type: 
  Country: None (occurrence: None)
  Receive Date: 20050209
  Receipt Date: 20050203
  Transmission Date: 20050727
  Serious: Yes (Hospitalization)
  Sender: FDA-Public Use
  Company Number: ZONI002104

PATIENT
  Age: 53 Year
  Sex: Male

DRUGS (13)
  1. EXCEGRAN (ZONISAMIDE) [Suspect]
     Indication: CONVULSION
     Dosage: 300 MG, 1 IN 1 D, ORAL
     Route: 048
     Dates: start: 20050107, end: 20050109
  2. TEGRETOL [Concomitant]
  3. BASEN (VOGLIBOSE) [Concomitant]
  4. GLYBURIDE [Concomitant]
  5. PANTOSIN (PANTETHINE) [Concomitant]
  6. LIPOVAS (SIMVASTATIN) [Concomitant]
  7. URSODIOL [Concomitant]
  8. VITAMEDIN (VITAMEDIN CAPSULE) [Concomitant]
  9. JUVELA N (TOCOPHERYL NICOTINATE) [Concomitant]
  10. OPALMON (LIMAPROST) [Concomitant]
  11. ANPLAG (SARPOGRELATE HYDROCHLORIDE) [Concomitant]
  12. NOVOLIN R [Concomitant]
  13. NOVOLIN N [Concomitant]

REACTIONS (2)
  - GENERALISED ERYTHEMA [None]
  - RASH [None]
